FAERS Safety Report 18224209 (Version 3)
Quarter: 2020Q3

REPORT INFORMATION
  Report Type: Spontaneous
  Country: US (occurrence: US)
  Receive Date: 20200902
  Receipt Date: 20200911
  Transmission Date: 20201103
  Serious: Yes (Hospitalization, Other)
  Sender: FDA-Public Use
  Company Number: NVSC2020US241477

PATIENT
  Age: 75 Year
  Sex: Female
  Weight: 68 kg

DRUGS (1)
  1. KYMRIAH [Suspect]
     Active Substance: TISAGENLECLEUCEL
     Indication: DIFFUSE LARGE B-CELL LYMPHOMA
     Dosage: 15 ML, ONCE/SINGLE (INTO BLOODSTREAM VIA VEIN)
     Route: 042
     Dates: start: 20200815, end: 20200823

REACTIONS (4)
  - Malnutrition [Unknown]
  - Cytokine release syndrome [Recovered/Resolved]
  - Neurotoxicity [Not Recovered/Not Resolved]
  - Renal impairment [Recovered/Resolved]

NARRATIVE: CASE EVENT DATE: 20200815
